FAERS Safety Report 5218322-3 (Version None)
Quarter: 2006Q4

REPORT INFORMATION
  Report Type: 
  Country: None (occurrence: None)
  Receive Date: 20061130
  Receipt Date: 20060915
  Transmission Date: 20070319
  Serious: Yes (Hospitalization)
  Sender: FDA-Public Use
  Company Number: US200603001439

PATIENT
  Age: 40 Year
  Sex: Female
  Weight: 119.3 kg

DRUGS (9)
  1. ZYPREXA [Suspect]
     Indication: SCHIZOPHRENIA
     Dates: start: 20000101
  2. ABILIFY [Concomitant]
  3. CLOMIPRAMINE HCL [Concomitant]
  4. CYMBALTA [Concomitant]
  5. FUROSEMIDE [Concomitant]
  6. DEPAKOTE [Concomitant]
  7. WELLBUTRIN [Concomitant]
  8. TOFRANIL-PM (IMIPRAMINE EMBONATE) [Concomitant]
  9. PREDNISONE [Concomitant]

REACTIONS (4)
  - DIABETES MELLITUS [None]
  - HYPERINSULINISM [None]
  - MENTAL DISORDER [None]
  - SCHIZOPHRENIA [None]
